FAERS Safety Report 4712253-0 (Version None)
Quarter: 2005Q3

REPORT INFORMATION
  Report Type: 
  Country: None (occurrence: None)
  Receive Date: 20050712
  Receipt Date: 20050526
  Transmission Date: 20060218
  Serious: Yes (Other)
  Sender: FDA-Public Use
  Company Number: US-GLAXOSMITHKLINE-B0383167A

PATIENT
  Age: 45 Year
  Sex: Male
  Weight: 85 kg

DRUGS (5)
  1. SERETIDE [Suspect]
     Indication: ASTHMA
     Route: 055
     Dates: start: 20030507, end: 20041224
  2. HIV TREATMENTS (UNSPECIFIED) [Concomitant]
  3. RITONAVIR [Concomitant]
     Dosage: 100MG PER DAY
     Dates: start: 20040625
  4. TENOFOVIR DISOPROXIL FUMARATE [Concomitant]
     Dosage: 245MG PER DAY
     Dates: start: 20030115
  5. LAMIVUDINE [Concomitant]
     Dosage: 300MG PER DAY
     Dates: start: 20030115

REACTIONS (2)
  - CUSHING'S SYNDROME [None]
  - DRUG INTERACTION [None]
